FAERS Safety Report 21298186 (Version 1)
Quarter: 2022Q3

REPORT INFORMATION
  Report Type: Spontaneous
  Country: DE (occurrence: DE)
  Receive Date: 20220906
  Receipt Date: 20220906
  Transmission Date: 20221027
  Serious: Yes (Other)
  Sender: FDA-Public Use
  Company Number: None

PATIENT
  Age: 36 Year
  Sex: Female

DRUGS (7)
  1. PROGESTERONE [Suspect]
     Active Substance: PROGESTERONE
     Indication: Prevention of endometrial hyperplasia
     Route: 067
     Dates: start: 20220808, end: 20220808
  2. GONADOTROPHIN, CHORIONIC [Suspect]
     Active Substance: GONADOTROPHIN, CHORIONIC
     Indication: Assisted reproductive technology
     Dosage: 10000 INTERNATIONAL UNIT
     Dates: start: 20220801, end: 20220801
  3. GONADOTROPHIN, CHORIONIC [Suspect]
     Active Substance: GONADOTROPHIN, CHORIONIC
     Dosage: 5000 INTERNATIONAL UNIT
     Dates: start: 20220808, end: 20220808
  4. FOLLITROPIN [Suspect]
     Active Substance: FOLLITROPIN
     Indication: Assisted reproductive technology
     Dosage: 175 INTERNATIONAL UNIT, QD
     Dates: start: 20220731, end: 20220801
  5. FOLLITROPIN [Suspect]
     Active Substance: FOLLITROPIN
     Dosage: 100 INTERNATIONAL UNIT, QD
     Dates: start: 20220721, end: 20220730
  6. GONADOTROPHIN, CHORIONIC [Suspect]
     Active Substance: GONADOTROPHIN, CHORIONIC
     Indication: Assisted reproductive technology
     Dosage: 1
     Dates: start: 20220721, end: 20220730
  7. DECAPEPTYL (ACETATE) [Suspect]
     Active Substance: TRIPTORELIN ACETATE
     Indication: Assisted reproductive technology
     Dates: start: 20220721, end: 20220801

REACTIONS (1)
  - Ovarian hyperstimulation syndrome [Recovered/Resolved]

NARRATIVE: CASE EVENT DATE: 20220809
